FAERS Safety Report 6051020-5 (Version None)
Quarter: 2009Q1

REPORT INFORMATION
  Report Type: 
  Country: None (occurrence: None)
  Receive Date: 20090121
  Receipt Date: 20090107
  Transmission Date: 20090719
  Serious: Yes (Death)
  Sender: FDA-Public Use
  Company Number: 1000003556

PATIENT
  Age: 34 Year
  Sex: Male

DRUGS (3)
  1. ESCITALOPRAM [Suspect]
     Indication: DEPRESSION
     Dosage: 20 MG (20 MG, 1 IN 1 D), ORAL
     Route: 048
     Dates: start: 20081215, end: 20081223
  2. ALPRAZOLAM [Concomitant]
  3. TAHOR [Concomitant]

REACTIONS (1)
  - SUDDEN DEATH [None]
